FAERS Safety Report 5382889-5 (Version None)
Quarter: 2007Q3

REPORT INFORMATION
  Report Type: 
  Country: None (occurrence: None)
  Receive Date: 20070710
  Receipt Date: 20070702
  Transmission Date: 20080115
  Serious: Yes (Hospitalization, Other)
  Sender: FDA-Public Use
  Company Number: PHNR2007AU01207

PATIENT
  Age: 74 Year
  Sex: Female

DRUGS (7)
  1. CLOZARIL [Suspect]
     Indication: SCHIZOPHRENIA
     Dosage: 0-350MG DAILY
     Route: 048
     Dates: start: 20000217, end: 20070530
  2. CLOZARIL [Suspect]
     Dosage: 300MG DAILY
     Route: 048
     Dates: start: 20070604
  3. CLOZARIL [Suspect]
     Dosage: 150MG DAILY
     Route: 048
     Dates: start: 20070601
  4. LITHIUM CARBONATE [Suspect]
     Dosage: 375MG DAILY TUESDAY/THURSDAY/SATURDAY/SUNDAY
     Dates: end: 20070530
  5. LITHIUM CARBONATE [Suspect]
     Dosage: 500MG DAILY MONDAY/WEDNESDAY/FRIDAY
     Dates: end: 20070530
  6. METFORMIN SR [Concomitant]
     Dosage: 2G MANE
  7. ASASANTIN - SLOW RELEASE [Concomitant]
     Dosage: 1 TABLET, BID

REACTIONS (14)
  - CONVULSION [None]
  - DEHYDRATION [None]
  - DEPRESSED LEVEL OF CONSCIOUSNESS [None]
  - DYSARTHRIA [None]
  - DYSKINESIA [None]
  - DYSPHAGIA [None]
  - ELECTROENCEPHALOGRAM ABNORMAL [None]
  - GAIT DISTURBANCE [None]
  - GENERAL PHYSICAL HEALTH DETERIORATION [None]
  - INCONTINENCE [None]
  - RENAL IMPAIRMENT [None]
  - SEDATION [None]
  - SOMNOLENCE [None]
  - THERAPEUTIC AGENT TOXICITY [None]
